FAERS Safety Report 8675774 (Version 2)
Quarter: 2013Q1

REPORT INFORMATION
  Report Type: Spontaneous
  Country: DE (occurrence: DE)
  Receive Date: 20120720
  Receipt Date: 20130124
  Transmission Date: 20140127
  Serious: Yes (Other)
  Sender: FDA-Public Use
  Company Number: DE-BRISTOL-MYERS SQUIBB COMPANY-16768780

PATIENT
  Age: 31 Year
  Sex: Male

DRUGS (1)
  1. ABILIFY [Suspect]
     Dosage: FOR THREE QUARTERS OF A YEAR ?INCREASED TO 20 MG.

REACTIONS (6)
  - Psychotic disorder [Unknown]
  - Drug level increased [Recovered/Resolved]
  - Blood creatine phosphokinase increased [Recovered/Resolved]
  - White blood cell count decreased [Unknown]
  - Weight decreased [Unknown]
  - Drug dose omission [Unknown]
